FAERS Safety Report 9028421 (Version 1)
Quarter: 2013Q1

REPORT INFORMATION
  Report Type: Spontaneous
  Country: BR (occurrence: BR)
  Receive Date: 20130124
  Receipt Date: 20130124
  Transmission Date: 20140127
  Serious: Yes (Other)
  Sender: FDA-Public Use
  Company Number: BR-PFIZER INC-2013029347

PATIENT
  Age: 54 Year
  Sex: Female
  Weight: 75 kg

DRUGS (3)
  1. LYRICA [Suspect]
     Indication: FIBROMYALGIA
     Dosage: 75 MG, 2X/DAY (EVERY 12 HOURS)
     Dates: start: 20130117, end: 201301
  2. METFORMIN [Concomitant]
     Indication: DIABETES MELLITUS
     Dosage: UNK
     Dates: start: 2011
  3. EUTHYROX [Concomitant]
     Indication: HYPOTHYROIDISM
     Dosage: UNK
     Dates: start: 2001

REACTIONS (9)
  - Chest pain [Not Recovered/Not Resolved]
  - Oedema mouth [Not Recovered/Not Resolved]
  - Swelling face [Not Recovered/Not Resolved]
  - Gastrointestinal hypomotility [Not Recovered/Not Resolved]
  - Disturbance in attention [Not Recovered/Not Resolved]
  - Retching [Not Recovered/Not Resolved]
  - Dry mouth [Not Recovered/Not Resolved]
  - Headache [Not Recovered/Not Resolved]
  - Feeling abnormal [Not Recovered/Not Resolved]
